FAERS Safety Report 5842044-9 (Version None)
Quarter: 2008Q3

REPORT INFORMATION
  Report Type: 
  Country: None (occurrence: None)
  Receive Date: 20080812
  Receipt Date: 20080801
  Transmission Date: 20090109
  Serious: Yes (Other)
  Sender: FDA-Public Use
  Company Number: US-TYCO HEALTHCARE/MALLINCKRODT-T200801239

PATIENT

DRUGS (2)
  1. ACETAMINOPHEN AND CODEINE PHOSPHATE [Suspect]
     Indication: PROCEDURAL PAIN
     Dosage: 30 MG, PRN
     Route: 048
     Dates: start: 20080701
  2. NUVARING [Concomitant]
     Indication: CONTRACEPTION
     Dosage: UNK, QD
     Route: 067

REACTIONS (1)
  - CONVULSION [None]
